FAERS Safety Report 26200593 (Version 1)
Quarter: 2025Q4

REPORT INFORMATION
  Report Type: Report from Study
  Country: US (occurrence: US)
  Receive Date: 20251225
  Receipt Date: 20251225
  Transmission Date: 20260117
  Serious: Yes (Other)
  Sender: ABBVIE
  Company Number: US-ABBVIE-6604637

PATIENT
  Sex: Female

DRUGS (1)
  1. IMBRUVICA [Suspect]
     Active Substance: IBRUTINIB
     Indication: Waldenstrom^s macroglobulinaemia
     Dosage: TIME INTERVAL: 0.33333333 DAYS
     Route: 048
     Dates: start: 202211

REACTIONS (6)
  - Uterine cancer [Unknown]
  - Rheumatoid arthritis [Unknown]
  - Hordeolum [Unknown]
  - Emotional distress [Unknown]
  - Gastrointestinal wall thickening [Unknown]
  - Gastrointestinal inflammation [Unknown]
